FAERS Safety Report 12010235 (Version 1)
Quarter: 2016Q1

REPORT INFORMATION
  Report Type: Spontaneous
  Country: None (occurrence: None)
  Receive Date: 20160204
  Receipt Date: 20160204
  Transmission Date: 20160526
  Serious: No
  Sender: FDA-Public Use
  Company Number: None

PATIENT
  Age: 32 Year
  Sex: Male
  Weight: 108.86 kg

DRUGS (1)
  1. SERTRALINE 50MG AUROBINDO [Suspect]
     Active Substance: SERTRALINE HYDROCHLORIDE
     Indication: ANXIETY
     Dosage: 1 PILL, ONCE DAILY, TAKEN BY MOUTH
     Dates: start: 20160119, end: 20160202

REACTIONS (5)
  - Product substitution issue [None]
  - Chest pain [None]
  - Palpitations [None]
  - Anxiety [None]
  - Disease recurrence [None]

NARRATIVE: CASE EVENT DATE: 20160201
